FAERS Safety Report 15362789 (Version 2)
Quarter: 2018Q3

REPORT INFORMATION
  Report Type: Spontaneous
  Country: IT (occurrence: IT)
  Receive Date: 20180907
  Receipt Date: 20180920
  Transmission Date: 20181010
  Serious: Yes (Other)
  Sender: FDA-Public Use
  Company Number: IT-ASTRAZENECA-2018SF12247

PATIENT
  Age: 48 Year
  Sex: Female

DRUGS (3)
  1. GABAPENTIN. [Suspect]
     Active Substance: GABAPENTIN
     Route: 048
  2. SEROQUEL [Suspect]
     Active Substance: QUETIAPINE FUMARATE
     Route: 048
  3. VALIUM [Suspect]
     Active Substance: DIAZEPAM
     Dosage: 1.0DF INTERMITTENT
     Route: 048

REACTIONS (3)
  - Intentional overdose [Unknown]
  - Sopor [Unknown]
  - Alcohol interaction [Unknown]

NARRATIVE: CASE EVENT DATE: 20180808
